FAERS Safety Report 6032362-6 (Version None)
Quarter: 2008Q4

REPORT INFORMATION
  Report Type: 
  Country: None (occurrence: None)
  Receive Date: 20081222
  Receipt Date: 20081106
  Transmission Date: 20090506
  Serious: No
  Sender: FDA-Public Use
  Company Number: US-WYE-H06770108

PATIENT
  Age: 54 Year
  Sex: Female

DRUGS (7)
  1. PRISTIQ [Suspect]
     Indication: ANXIETY
     Dosage: 50 MG, FREQUENCY NOT SPECIFIED, ORAL
     Route: 048
     Dates: start: 20081104, end: 20081105
  2. LOPRESSOR (METOPROLOL TARTRATE) [Concomitant]
  3. PLAVIX [Concomitant]
  4. ZESTRIL [Concomitant]
  5. ASPIRIN [Concomitant]
  6. SYNTHROID [Concomitant]
  7. TRICOR [Concomitant]

REACTIONS (1)
  - ANGER [None]
